FAERS Safety Report 9617812 (Version 2)
Quarter: 2013Q4

REPORT INFORMATION
  Report Type: Spontaneous
  Country: GB (occurrence: None)
  Receive Date: 20131009
  Receipt Date: 20131118
  Transmission Date: 20140711
  Serious: Yes (Other)
  Sender: FDA-Public Use
  Company Number: AUR-APL-2013-01996

PATIENT
  Age: 63 Year
  Sex: Male

DRUGS (1)
  1. TAMSULOSIN [Suspect]
     Indication: PROSTATIC DISORDER

REACTIONS (3)
  - Visual impairment [None]
  - Macular fibrosis [None]
  - Vision blurred [None]
